FAERS Safety Report 10072093 (Version 1)
Quarter: 2014Q2

REPORT INFORMATION
  Report Type: Spontaneous
  Country: CH (occurrence: None)
  Receive Date: 20140409
  Receipt Date: 20140409
  Transmission Date: 20141212
  Serious: Yes (Other)
  Sender: FDA-Public Use
  Company Number: 20140185

PATIENT
  Age: 46 Year
  Sex: Female
  Weight: 57.5 kg

DRUGS (20)
  1. VENOFER (IRON SUCROSE INJECTION-VIFOR (IRON SUCROSE INJECTION) 20 MG/ML [Suspect]
     Indication: ANAEMIA
     Dosage: 100 MG, 1 IN 1 WK, INTRAVENOUS DRIP
     Route: 041
     Dates: start: 20010122
  2. CALCI-CHEW (CALCIUM CARBONATE) [Concomitant]
  3. CAPOTEN (CAPTOPRIL) [Concomitant]
  4. CLINORIL (SULINDAC) [Concomitant]
  5. DEPRONAL (DEXTROPOPOXYPHENE HYDROCHLORIDE) [Concomitant]
  6. EMLA (LIDOCAINE) [Concomitant]
  7. EPREX (EPOETIN ALFA) [Concomitant]
  8. ETALPHA (ALFACALCIDOL) [Concomitant]
  9. FRAXIPARIN (HEPARIN-FRACTION, CALCIUM SALT) [Concomitant]
  10. IMURAN (AZATHIOPRINE) [Concomitant]
  11. INHIBIN (THIAMINE HYDROCHLORIDE) [Concomitant]
  12. ISORDIL (ISOSORBIDE DINITRATE) [Concomitant]
  13. LASIX (FUROSEMIDE) [Concomitant]
  14. LOSEC (OMEPRAZOLE) [Concomitant]
  15. MICROGYNON 30 (ETHINYLESTRADIOL) [Concomitant]
  16. ORGAMETRIL (LYNESTRENOL) [Concomitant]
  17. PREDNISONE (PREDNISONE) [Concomitant]
  18. ZOCOR (SIMVASTATIN) [Concomitant]
  19. MULTIVITAMIN (ERGOCALCIFEROL, VITAMIN B COMPLEX, VITAMIN C AND FOLIC ACID) [Concomitant]
  20. SODIUM BICARBONATE [Concomitant]

REACTIONS (4)
  - Malaise [None]
  - Fatigue [None]
  - Fatigue [None]
  - Muscular weakness [None]
